FAERS Safety Report 10938650 (Version 2)
Quarter: 2015Q2

REPORT INFORMATION
  Report Type: Spontaneous
  Country: US (occurrence: US)
  Receive Date: 20150321
  Receipt Date: 20150525
  Transmission Date: 20150821
  Serious: No
  Sender: FDA-Public Use
  Company Number: US-JNJFOC-20121109493

PATIENT
  Age: 48 Year
  Sex: Male
  Weight: 97.52 kg

DRUGS (2)
  1. BLOOD PRESSURE MEDICATION NOS [Concomitant]
     Active Substance: UNSPECIFIED INGREDIENT
     Indication: HYPERTENSION
     Route: 048
  2. STELARA [Suspect]
     Active Substance: USTEKINUMAB
     Indication: SEBORRHOEIC DERMATITIS
     Route: 058
     Dates: start: 201112

REACTIONS (5)
  - Blood cholesterol increased [Not Recovered/Not Resolved]
  - Product use issue [Not Recovered/Not Resolved]
  - Abdominal discomfort [Not Recovered/Not Resolved]
  - Injection site pain [Not Recovered/Not Resolved]
  - Liver disorder [Not Recovered/Not Resolved]

NARRATIVE: CASE EVENT DATE: 201112
